FAERS Safety Report 6336270-2 (Version None)
Quarter: 2009Q3

REPORT INFORMATION
  Report Type: 
  Country: None (occurrence: None)
  Receive Date: 20090901
  Receipt Date: 20090827
  Transmission Date: 20100115
  Serious: Yes (Life-Threatening, Hospitalization, Disabling, Other)
  Sender: FDA-Public Use
  Company Number: PHEH2009US09206

PATIENT
  Sex: Female
  Weight: 63.946 kg

DRUGS (1)
  1. RECLAST [Suspect]
     Indication: OSTEOPOROSIS
     Dosage: 5 MG, ONCE/SINGLE
     Dates: start: 20090715

REACTIONS (15)
  - ACTIVITIES OF DAILY LIVING IMPAIRED [None]
  - ASTHENIA [None]
  - CONFUSIONAL STATE [None]
  - DEHYDRATION [None]
  - DYSSTASIA [None]
  - HYPOPHAGIA [None]
  - INFLUENZA LIKE ILLNESS [None]
  - MENTAL STATUS CHANGES [None]
  - MYALGIA [None]
  - NAUSEA [None]
  - PYREXIA [None]
  - SPEECH DISORDER [None]
  - STARING [None]
  - URINARY INCONTINENCE [None]
  - VOMITING [None]
